FAERS Safety Report 15518308 (Version 2)
Quarter: 2018Q4

REPORT INFORMATION
  Report Type: Report from Study
  Country: None (occurrence: BE)
  Receive Date: 20181017
  Receipt Date: 20181030
  Transmission Date: 20190205
  Serious: Yes (Death)
  Sender: FDA-Public Use
  Company Number: BE-ABBVIE-17K-013-2076147-00

PATIENT
  Sex: Female

DRUGS (9)
  1. MIRAPEXIN [Concomitant]
     Active Substance: PRAMIPEXOLE
     Indication: PRODUCT USED FOR UNKNOWN INDICATION
  2. DUODOPA [Suspect]
     Active Substance: CARBIDOPA\LEVODOPA
     Dosage: MD=5.5ML??CD=3.8ML/HR DURING 16HRS ??EDA=2ML
     Route: 050
     Dates: start: 20160803, end: 20170811
  3. DUODOPA [Suspect]
     Active Substance: CARBIDOPA\LEVODOPA
     Dosage: MD=5.5ML CD=3.3ML/HR DURING 16HRS ED=2ML
     Route: 050
     Dates: start: 20180413, end: 20180424
  4. DUODOPA [Suspect]
     Active Substance: CARBIDOPA\LEVODOPA
     Dosage: MD=5.5ML CD=2.6ML/HR DURING 16HRS
     Route: 050
     Dates: start: 20180518
  5. DUODOPA [Suspect]
     Active Substance: CARBIDOPA\LEVODOPA
     Dosage: MD=5.5ML CD=3 ML/HR DURING 16HRS ED=2ML
     Route: 050
     Dates: start: 20180424, end: 20180518
  6. STALEVO [Concomitant]
     Active Substance: CARBIDOPA\ENTACAPONE\LEVODOPA
     Indication: PRODUCT USED FOR UNKNOWN INDICATION
     Dosage: 4TIMES/DAY AS RESCUE MEDICATION?FORM STRENGTH: 150MG/37.5MG/200MG
  7. DUODOPA [Suspect]
     Active Substance: CARBIDOPA\LEVODOPA
     Dosage: MD=5.5ML CD=3.6ML/HR DURING 16HRS EDA=2ML
     Route: 050
     Dates: start: 20170811, end: 20180413
  8. DUODOPA [Suspect]
     Active Substance: CARBIDOPA\LEVODOPA
     Indication: PARKINSON^S DISEASE
     Dosage: MD=6ML CD=4.5ML/HR DURING 16HRS EDA=2ML
     Route: 050
     Dates: start: 20120806, end: 20120810
  9. DUODOPA [Suspect]
     Active Substance: CARBIDOPA\LEVODOPA
     Dosage: DOSES CONTINUOUSLY MONITORED AND ADAPTED
     Route: 050
     Dates: start: 20120810, end: 20160803

REACTIONS (6)
  - Dyskinesia [Not Recovered/Not Resolved]
  - Weight increased [Unknown]
  - Device breakage [Recovered/Resolved]
  - Aphasia [Unknown]
  - General physical health deterioration [Unknown]
  - Death [Fatal]
